FAERS Safety Report 4728637-0 (Version None)
Quarter: 2005Q3

REPORT INFORMATION
  Report Type: 
  Country: None (occurrence: None)
  Receive Date: 20050727
  Receipt Date: 20050713
  Transmission Date: 20060218
  Serious: Yes (Other)
  Sender: FDA-Public Use
  Company Number: 2005PV000333

PATIENT
  Age: 61 Year
  Sex: Female
  Weight: 114.3065 kg

DRUGS (9)
  1. BYETTA [Suspect]
     Indication: DIABETES MELLITUS NON-INSULIN-DEPENDENT
     Dosage: 5 UG; BID;SC; 10 UG; BID; SC; 5 UG; BID; SC
     Route: 058
     Dates: start: 20050616, end: 20050708
  2. BYETTA [Suspect]
     Indication: DIABETES MELLITUS NON-INSULIN-DEPENDENT
     Dosage: 5 UG; BID;SC; 10 UG; BID; SC; 5 UG; BID; SC
     Route: 058
     Dates: start: 20050709, end: 20050713
  3. BYETTA [Suspect]
     Indication: DIABETES MELLITUS NON-INSULIN-DEPENDENT
     Dosage: 5 UG; BID;SC; 10 UG; BID; SC; 5 UG; BID; SC
     Route: 058
     Dates: start: 20050713
  4. ACTOS [Concomitant]
  5. LANTUS [Concomitant]
  6. WELLBUTRIN [Concomitant]
  7. MULTI-VITAMINS [Concomitant]
  8. PREVACID [Concomitant]
  9. VICODIN [Concomitant]

REACTIONS (5)
  - ANXIETY [None]
  - CARDIAC DISORDER [None]
  - DECREASED APPETITE [None]
  - STRESS [None]
  - WEIGHT DECREASED [None]
